FAERS Safety Report 6643759-5 (Version None)
Quarter: 2010Q1

REPORT INFORMATION
  Report Type: 
  Country: None (occurrence: None)
  Receive Date: 20100322
  Receipt Date: 20100316
  Transmission Date: 20100710
  Serious: Yes (Other)
  Sender: FDA-Public Use
  Company Number: US-RANBAXY-2010US-32291

PATIENT

DRUGS (12)
  1. NIFEDIPINE RANBAXY L.P. 30MG COMPRIME PELLICULE A LIBERATION PROLONGEE [Suspect]
     Indication: HYPERTENSION
     Dosage: 30 MG, QD
     Route: 065
  2. NORTRIPTYLINE HCL [Suspect]
     Indication: HYPERTENSION
     Dosage: 25 MG, UNK
     Route: 048
     Dates: start: 20071211, end: 20080301
  3. CARVEDILOL [Suspect]
     Indication: HYPERTENSION
     Dosage: 12.5 MG, BID
     Route: 065
     Dates: start: 20080119
  4. CARVEDILOL [Suspect]
     Dosage: 12.5 MG, 5-6 TIMES PER DAY
     Route: 065
  5. ATENOLOL [Suspect]
     Indication: DRUG USE FOR UNKNOWN INDICATION
     Dosage: UNK, UNK
     Route: 065
  6. CLONIDINE [Suspect]
     Indication: DRUG USE FOR UNKNOWN INDICATION
     Dosage: UKN, UNK
     Route: 065
  7. HYDRALAZINE HCL [Suspect]
     Indication: DRUG USE FOR UNKNOWN INDICATION
     Dosage: UNK,UNK
     Route: 065
  8. CARDIZEM [Suspect]
     Indication: DRUG USE FOR UNKNOWN INDICATION
     Dosage: UNK, UNK
     Route: 065
  9. FIORICET [Suspect]
     Indication: DRUG USE FOR UNKNOWN INDICATION
     Dosage: UNK, UNK
     Route: 065
  10. BUSPAR [Suspect]
     Indication: DRUG USE FOR UNKNOWN INDICATION
     Dosage: UNK, UNK
     Route: 065
  11. TRAZODONE HCL [Suspect]
     Indication: HYPERTENSION
     Dosage: UNK, 1 TAB AT BEDTIME
     Route: 065
  12. TENORETIC 100 [Suspect]
     Indication: BLOOD PRESSURE
     Dosage: 25 MG, QD, FOR APPROX. 3 WEEKS
     Route: 065

REACTIONS (5)
  - BLOOD PRESSURE INCREASED [None]
  - DRUG INEFFECTIVE [None]
  - DRUG INEFFECTIVE FOR UNAPPROVED INDICATION [None]
  - OFF LABEL USE [None]
  - OVERDOSE [None]
